FAERS Safety Report 4893635-3 (Version None)
Quarter: 2005Q4

REPORT INFORMATION
  Report Type: 
  Country: None (occurrence: None)
  Receive Date: 20051223
  Receipt Date: 20051002
  Transmission Date: 20060501
  Serious: No
  Sender: FDA-Public Use
  Company Number: 2005PV002789

PATIENT
  Age: 50 Year
  Sex: Male
  Weight: 92.9874 kg

DRUGS (7)
  1. SYMLIN [Suspect]
     Indication: DIABETES MELLITUS INSULIN-DEPENDENT
     Dosage: 30 MCG;BID;SC ; 45 MCG;BID;SC ; 60 MCG;BID;SC
     Route: 058
     Dates: start: 20050801, end: 20050101
  2. SYMLIN [Suspect]
     Indication: DIABETES MELLITUS INSULIN-DEPENDENT
     Dosage: 30 MCG;BID;SC ; 45 MCG;BID;SC ; 60 MCG;BID;SC
     Route: 058
     Dates: start: 20050801, end: 20050101
  3. SYMLIN [Suspect]
     Indication: DIABETES MELLITUS INSULIN-DEPENDENT
     Dosage: 30 MCG;BID;SC ; 45 MCG;BID;SC ; 60 MCG;BID;SC
     Route: 058
     Dates: start: 20050801
  4. LOVOSTATIN (40 MG) [Suspect]
     Indication: HYPERLIPIDAEMIA
     Dosage: 80 MG;HS;PO
     Route: 048
  5. VERAPAMIL [Concomitant]
  6. LISINOPRIL W/HYDROCHLOROTHIAZIDE [Concomitant]
  7. NOVOLOG [Concomitant]

REACTIONS (5)
  - DECREASED APPETITE [None]
  - DYSPEPSIA [None]
  - MUSCLE ATROPHY [None]
  - NAUSEA [None]
  - WEIGHT DECREASED [None]
